FAERS Safety Report 4867649-3 (Version None)
Quarter: 2005Q4

REPORT INFORMATION
  Report Type: 
  Country: None (occurrence: None)
  Receive Date: 20051222
  Receipt Date: 20051222
  Transmission Date: 20060501
  Serious: Yes (Life-Threatening)
  Sender: FDA-Public Use
  Company Number: None

PATIENT
  Age: 35 Year
  Sex: Male
  Weight: 97 kg

DRUGS (14)
  1. WARFARIN     5 MG [Suspect]
     Indication: DEEP VEIN THROMBOSIS
     Dosage: 5 MG   QHS   PO
     Route: 048
     Dates: start: 20051004, end: 20051016
  2. WARFARIN     5 MG [Suspect]
     Indication: PULMONARY EMBOLISM
     Dosage: 5 MG   QHS   PO
     Route: 048
     Dates: start: 20051004, end: 20051016
  3. FLUCONAZOLE [Suspect]
     Indication: INFECTION
     Dosage: 200 MG   QD  PO
     Route: 048
     Dates: start: 20051004, end: 20051014
  4. BUPROPION [Concomitant]
  5. TYLENOL [Concomitant]
  6. BENADRYL [Concomitant]
  7. CALCIUM GLUCONATE [Concomitant]
  8. FERROUS SULFATE TAB [Concomitant]
  9. FOLIC ACID [Concomitant]
  10. LORTAB [Concomitant]
  11. AMOXICILLIN [Concomitant]
  12. LORATADINE [Concomitant]
  13. RANITIDINE [Concomitant]
  14. SIMETHICONE [Concomitant]

REACTIONS (6)
  - ACTIVATED PARTIAL THROMBOPLASTIN TIME PROLONGED [None]
  - ASTHENIA [None]
  - GASTROINTESTINAL HAEMORRHAGE [None]
  - INTERNATIONAL NORMALISED RATIO INCREASED [None]
  - RECTAL HAEMORRHAGE [None]
  - TACHYPNOEA [None]
